FAERS Safety Report 11741635 (Version 1)
Quarter: 2015Q4

REPORT INFORMATION
  Report Type: Spontaneous
  Country: US (occurrence: None)
  Receive Date: 20151113
  Receipt Date: 20151113
  Transmission Date: 20160304
  Serious: Yes (Other)
  Sender: FDA-Public Use
  Company Number: None

PATIENT
  Age: 53 Year
  Sex: Female
  Weight: 68.04 kg

DRUGS (1)
  1. CLONAZEPAM 0.5 MG TAB SAND/TAB ACCO [Suspect]
     Active Substance: CLONAZEPAM
     Indication: ANXIETY
     Dosage: 1 PILL
     Route: 048
     Dates: start: 20151002, end: 20151020

REACTIONS (5)
  - Intentional product use issue [None]
  - Pain [None]
  - Inappropriate schedule of drug administration [None]
  - Feeling abnormal [None]
  - Movement disorder [None]

NARRATIVE: CASE EVENT DATE: 20151016
